FAERS Safety Report 6732265-5 (Version None)
Quarter: 2010Q2

REPORT INFORMATION
  Report Type: 
  Country: None (occurrence: None)
  Receive Date: 20100519
  Receipt Date: 20100512
  Transmission Date: 20101027
  Serious: Yes (Hospitalization)
  Sender: FDA-Public Use
  Company Number: B0644264A

PATIENT
  Sex: Female

DRUGS (3)
  1. LAMICTAL [Suspect]
     Indication: EPILEPSY
     Route: 048
     Dates: start: 20091228, end: 20100308
  2. DEPAKENE [Concomitant]
     Indication: EPILEPSY
     Dosage: 1200MG PER DAY
     Route: 048
     Dates: start: 19940101
  3. COMELIAN [Concomitant]
     Indication: IGA NEPHROPATHY
     Dosage: 400MG PER DAY
     Route: 048
     Dates: start: 19900101

REACTIONS (10)
  - ALANINE AMINOTRANSFERASE INCREASED [None]
  - ASPARTATE AMINOTRANSFERASE INCREASED [None]
  - BLOOD ALBUMIN DECREASED [None]
  - HAEMATOCRIT DECREASED [None]
  - HEPATIC FUNCTION ABNORMAL [None]
  - LOW DENSITY LIPOPROTEIN INCREASED [None]
  - PLATELET COUNT DECREASED [None]
  - PYREXIA [None]
  - RED CELL DISTRIBUTION WIDTH DECREASED [None]
  - WHITE BLOOD CELL COUNT DECREASED [None]
